FAERS Safety Report 14282089 (Version 2)
Quarter: 2018Q4

REPORT INFORMATION
  Report Type: Spontaneous
  Country: US (occurrence: US)
  Receive Date: 20171213
  Receipt Date: 20181211
  Transmission Date: 20190204
  Serious: No
  Sender: FDA-Public Use
  Company Number: US-PFIZER INC-2017526181

PATIENT
  Age: 65 Year
  Sex: Female

DRUGS (1)
  1. ATROPINE SULFATE/DIPHENOXYLATE HYDROCHLORIDE [Suspect]
     Active Substance: ATROPINE SULFATE\DIPHENOXYLATE HYDROCHLORIDE
     Indication: DIARRHOEA
     Dosage: 5 MG, 4X/DAY (2.5MG /2 TABLETS EVERY 6 HR)/TWO IN THE MORNING/THEN TWO ANOTHER TWO AT NIGHT)
     Route: 048
     Dates: start: 20170506, end: 20170506

REACTIONS (4)
  - Drug effect incomplete [Recovered/Resolved]
  - Recalled product administered [Recovered/Resolved]
  - Malaise [Recovered/Resolved]
  - Vomiting [Recovered/Resolved]

NARRATIVE: CASE EVENT DATE: 201705
